FAERS Safety Report 11578639 (Version 1)
Quarter: 2015Q3

REPORT INFORMATION
  Report Type: Spontaneous
  Country: US (occurrence: US)
  Receive Date: 20150930
  Receipt Date: 20150930
  Transmission Date: 20151125
  Serious: Yes (Other)
  Sender: FDA-Public Use
  Company Number: US-PFIZER INC-2015325234

PATIENT
  Age: 53 Year

DRUGS (1)
  1. LYRICA [Suspect]
     Active Substance: PREGABALIN
     Dosage: 200 MG, 2X/DAY
     Route: 048

REACTIONS (18)
  - Fatigue [Unknown]
  - Myalgia [Unknown]
  - Ulcer [Unknown]
  - Arthritis [Unknown]
  - Joint swelling [Unknown]
  - Dysphagia [Unknown]
  - Dyspepsia [Unknown]
  - Depression [Unknown]
  - Gastrooesophageal reflux disease [Unknown]
  - Barrett^s oesophagus [Unknown]
  - Tinnitus [Unknown]
  - Decreased appetite [Unknown]
  - Anaemia [Unknown]
  - Arthralgia [Unknown]
  - Amnesia [Unknown]
  - Back pain [Unknown]
  - Abdominal distension [Unknown]
  - Deafness [Unknown]
